FAERS Safety Report 21285218 (Version 1)
Quarter: 2022Q3

REPORT INFORMATION
  Report Type: Spontaneous
  Country: BR (occurrence: None)
  Receive Date: 20220902
  Receipt Date: 20220902
  Transmission Date: 20221027
  Serious: Yes (Other)
  Sender: FDA-Public Use
  Company Number: BR-ROCHE-3168131

PATIENT
  Age: 56 Year
  Sex: Female

DRUGS (10)
  1. TRASTUZUMAB [Suspect]
     Active Substance: TRASTUZUMAB
     Indication: Invasive ductal breast carcinoma
     Route: 065
     Dates: start: 2012
  2. TRASTUZUMAB [Suspect]
     Active Substance: TRASTUZUMAB
     Route: 065
     Dates: start: 201410, end: 201604
  3. TRASTUZUMAB [Suspect]
     Active Substance: TRASTUZUMAB
     Route: 065
     Dates: start: 201606, end: 201810
  4. PERTUZUMAB [Suspect]
     Active Substance: PERTUZUMAB
     Indication: Invasive ductal breast carcinoma
     Route: 065
     Dates: start: 201410, end: 201604
  5. PERTUZUMAB [Suspect]
     Active Substance: PERTUZUMAB
     Route: 065
     Dates: start: 201606, end: 201810
  6. ADO-TRASTUZUMAB EMTANSINE [Suspect]
     Active Substance: ADO-TRASTUZUMAB EMTANSINE
     Indication: Invasive ductal breast carcinoma
     Route: 065
     Dates: start: 201810
  7. DOXORUBICIN [Concomitant]
     Active Substance: DOXORUBICIN
     Dates: start: 2012
  8. CYCLOPHOSPHAMIDE [Concomitant]
     Active Substance: CYCLOPHOSPHAMIDE
     Dates: start: 2012
  9. DOCETAXEL [Concomitant]
     Active Substance: DOCETAXEL
     Dates: start: 2012
  10. TAXOL [Concomitant]
     Active Substance: PACLITAXEL
     Dosage: WEEKLY
     Dates: start: 201410, end: 201604

REACTIONS (2)
  - Wound necrosis [Unknown]
  - Disease progression [Unknown]

NARRATIVE: CASE EVENT DATE: 20121101
